FAERS Safety Report 16434603 (Version 2)
Quarter: 2019Q2

REPORT INFORMATION
  Report Type: Report from Study
  Country: CA (occurrence: US)
  Receive Date: 20190614
  Receipt Date: 20190621
  Transmission Date: 20190711
  Serious: Yes (Death, Life-Threatening, Hospitalization, Other)
  Sender: FDA-Public Use
  Company Number: CA-EXELIXIS-XL18419019939

PATIENT
  Age: 67 Year
  Sex: Female
  Weight: 82.1 kg

DRUGS (12)
  1. PROCHLORPERAZINE MALEATE. [Concomitant]
     Active Substance: PROCHLORPERAZINE MALEATE
  2. XL184 [Suspect]
     Active Substance: CABOZANTINIB
     Indication: ENDOMETRIAL ADENOCARCINOMA
     Dosage: 40 MG, QD
     Route: 048
     Dates: start: 20190318
  3. CETIRIZINE HCL [Concomitant]
     Active Substance: CETIRIZINE HYDROCHLORIDE
  4. FLUTICASONE PROPIONATE. [Concomitant]
     Active Substance: FLUTICASONE PROPIONATE
  5. VENLAFAXINE HCL [Concomitant]
     Active Substance: VENLAFAXINE HYDROCHLORIDE
  6. NIVOLUMAB [Suspect]
     Active Substance: NIVOLUMAB
     Indication: ENDOMETRIAL ADENOCARCINOMA
     Dosage: 240 MG OVER 60 MINUTES ON DAYS 1 AND 15
     Route: 042
     Dates: start: 20190318
  7. LORAZEPAM. [Concomitant]
     Active Substance: LORAZEPAM
  8. ACETAMINOPHEN. [Concomitant]
     Active Substance: ACETAMINOPHEN
  9. ERGOCALCIFEROL. [Concomitant]
     Active Substance: ERGOCALCIFEROL
  10. HYDROCODONE/ACETAMINOPHEN [Concomitant]
     Active Substance: ACETAMINOPHEN\HYDROCODONE
  11. FENTANYL. [Concomitant]
     Active Substance: FENTANYL
  12. FLUCONAZOLE. [Concomitant]
     Active Substance: FLUCONAZOLE

REACTIONS (7)
  - Dyspnoea [Not Recovered/Not Resolved]
  - Dysphagia [Recovering/Resolving]
  - Tumour lysis syndrome [Fatal]
  - Atrial fibrillation [Not Recovered/Not Resolved]
  - Malignant neoplasm progression [Fatal]
  - Acute kidney injury [Not Recovered/Not Resolved]
  - Deep vein thrombosis [Unknown]

NARRATIVE: CASE EVENT DATE: 20190327
